FAERS Safety Report 11708229 (Version 1)
Quarter: 2015Q4

REPORT INFORMATION
  Report Type: Spontaneous
  Country: US (occurrence: US)
  Receive Date: 20151104
  Receipt Date: 20151104
  Transmission Date: 20160304
  Serious: No
  Sender: FDA-Public Use
  Company Number: US-ELI_LILLY_AND_COMPANY-US201102000104

PATIENT
  Sex: Female

DRUGS (3)
  1. FORTEO [Suspect]
     Active Substance: TERIPARATIDE
     Dosage: 20 UG, OTHER
     Route: 065
  2. FORTEO [Suspect]
     Active Substance: TERIPARATIDE
     Indication: OSTEOPOROSIS
     Dosage: 20 UG, DAILY (1/D)
     Route: 065
     Dates: start: 20100926, end: 20101028
  3. FOSAMAX [Concomitant]
     Active Substance: ALENDRONATE SODIUM

REACTIONS (9)
  - Impaired healing [Unknown]
  - Device failure [Unknown]
  - Arthralgia [Recovered/Resolved]
  - Limb discomfort [Unknown]
  - Neck pain [Recovered/Resolved]
  - Procedural pain [Unknown]
  - Bone pain [Recovered/Resolved]
  - Malaise [Unknown]
  - Pain [Recovered/Resolved]
